FAERS Safety Report 9294744 (Version 2)
Quarter: 2013Q2

REPORT INFORMATION
  Report Type: Spontaneous
  Country: IT (occurrence: IT)
  Receive Date: 20130517
  Receipt Date: 20130604
  Transmission Date: 20140414
  Serious: Yes (Death, Hospitalization)
  Sender: FDA-Public Use
  Company Number: IT-ROCHE-1224459

PATIENT
  Age: 75 Year
  Sex: Male
  Weight: 68 kg

DRUGS (5)
  1. MABTHERA [Suspect]
     Indication: B-CELL LYMPHOMA
     Route: 041
     Dates: start: 20130418, end: 20130418
  2. MABTHERA [Suspect]
     Dosage: 500 MG/50 ML
     Route: 065
  3. CYCLOPHOSPHAMIDE [Suspect]
     Indication: B-CELL LYMPHOMA
     Route: 041
     Dates: start: 20130418, end: 20130418
  4. VINCRISTINE SULFATE [Suspect]
     Indication: B-CELL LYMPHOMA
     Route: 041
     Dates: start: 20130418, end: 20130418
  5. PREDNISONE [Suspect]
     Indication: B-CELL LYMPHOMA
     Route: 041
     Dates: start: 20130418, end: 20130418

REACTIONS (2)
  - Febrile neutropenia [Fatal]
  - Pneumonia [Fatal]
